FAERS Safety Report 24674914 (Version 2)
Quarter: 2025Q1

REPORT INFORMATION
  Report Type: Spontaneous
  Country: US (occurrence: US)
  Receive Date: 20241128
  Receipt Date: 20250108
  Transmission Date: 20250409
  Serious: No
  Sender: MERCK
  Company Number: US-009507513-2411USA010533

PATIENT
  Age: 57 Year
  Sex: Male

DRUGS (6)
  1. WELIREG [Interacting]
     Active Substance: BELZUTIFAN
     Indication: Clear cell renal cell carcinoma
     Dosage: 80 MILLIGRAM, QD
     Route: 048
     Dates: start: 202206, end: 2022
  2. WELIREG [Interacting]
     Active Substance: BELZUTIFAN
     Indication: Acquired gene mutation
     Dosage: 40 MILLIGRAM, QD
     Route: 048
     Dates: start: 2022, end: 2022
  3. WELIREG [Interacting]
     Active Substance: BELZUTIFAN
     Dosage: 80 MILLIGRAM, QD
     Route: 048
     Dates: start: 2022, end: 2022
  4. DAPSONE [Interacting]
     Active Substance: DAPSONE
     Indication: Antifungal prophylaxis
  5. EVEROLIMUS [Concomitant]
     Active Substance: EVEROLIMUS
     Indication: PTEN gene mutation
     Dosage: 5 MILLIGRAM, QD
     Route: 048
     Dates: start: 202206
  6. EVEROLIMUS [Concomitant]
     Active Substance: EVEROLIMUS
     Indication: Clear cell renal cell carcinoma

REACTIONS (3)
  - Drug interaction [Unknown]
  - Anaemia [Recovered/Resolved]
  - Off label use [Unknown]

NARRATIVE: CASE EVENT DATE: 20220101
